FAERS Safety Report 16911177 (Version 1)
Quarter: 2019Q4

REPORT INFORMATION
  Report Type: Other
  Country: SA (occurrence: SA)
  Receive Date: 20191012
  Receipt Date: 20191012
  Transmission Date: 20200122
  Serious: Yes (Hospitalization, Other)
  Sender: FDA-Public Use
  Company Number: SA-INVATECH-000008

PATIENT
  Age: 47 Year
  Sex: Female

DRUGS (2)
  1. MESTINON [Suspect]
     Active Substance: PYRIDOSTIGMINE BROMIDE
     Indication: PRODUCT USED FOR UNKNOWN INDICATION
     Dosage: 120 TABLETS CONTAINING 60 MG OF PYRIDOSTIGMINE (A TOTAL OF 7200 MG)
     Route: 048
  2. MESTINON [Suspect]
     Active Substance: PYRIDOSTIGMINE BROMIDE
     Indication: MYASTHENIA GRAVIS
     Dosage: 3 TIMES PER DAY
     Route: 048

REACTIONS (21)
  - Salivary hypersecretion [Recovered/Resolved]
  - Asthenia [Recovered/Resolved]
  - Hyperglycaemia [Recovered/Resolved]
  - Suicide attempt [Unknown]
  - Ataxia [Recovered/Resolved]
  - Vision blurred [Recovered/Resolved]
  - Urinary incontinence [Recovered/Resolved]
  - Hypotonia [Recovered/Resolved]
  - Vomiting [Recovered/Resolved]
  - Foaming at mouth [Recovered/Resolved]
  - Disorientation [Recovered/Resolved]
  - Hypokalaemia [Recovered/Resolved]
  - Emotional distress [Recovered/Resolved]
  - Intentional overdose [Unknown]
  - Toxicity to various agents [Recovered/Resolved]
  - Increased bronchial secretion [Recovered/Resolved]
  - Pulse abnormal [Recovered/Resolved]
  - Hyperhidrosis [Recovered/Resolved]
  - Lacrimation increased [Recovered/Resolved]
  - Muscle contractions involuntary [Recovered/Resolved]
  - Metabolic alkalosis [Recovered/Resolved]
